FAERS Safety Report 7023940-6 (Version None)
Quarter: 2010Q3

REPORT INFORMATION
  Report Type: 
  Country: None (occurrence: None)
  Receive Date: 20100916
  Receipt Date: 20100809
  Transmission Date: 20110219
  Serious: No
  Sender: FDA-Public Use
  Company Number: DKLU1064251

PATIENT
  Age: 5 Year
  Sex: Male

DRUGS (5)
  1. SABRIL [Suspect]
     Indication: INFANTILE SPASMS
     Dosage: SEE IMAGE ORAL
     Route: 048
     Dates: start: 20100719, end: 20100101
  2. VALPROATE SODIUM [Concomitant]
  3. LAMOTRIGINE [Concomitant]
  4. ZONISAMIDE [Concomitant]
  5. CLONAZEPAM [Concomitant]

REACTIONS (2)
  - CONVULSION [None]
  - PALLOR [None]
